FAERS Safety Report 5395340-6 (Version None)
Quarter: 2007Q3

REPORT INFORMATION
  Report Type: 
  Country: None (occurrence: None)
  Receive Date: 20070724
  Receipt Date: 20070712
  Transmission Date: 20080115
  Serious: Yes (Other)
  Sender: FDA-Public Use
  Company Number: GBWYE964811AUG04

PATIENT
  Sex: Female
  Weight: 65.5 kg

DRUGS (11)
  1. RAPAMUNE [Suspect]
     Indication: IMMUNOSUPPRESSANT DRUG THERAPY
     Route: 048
     Dates: start: 20040505
  2. ASPIRIN [Concomitant]
     Route: 048
     Dates: start: 20020513
  3. ARANESP [Concomitant]
     Route: 058
     Dates: start: 20010828
  4. FERROUS SULFATE [Concomitant]
     Route: 048
     Dates: start: 20040608
  5. INSULIN [Concomitant]
     Dosage: AS REQUIRED
     Route: 058
     Dates: start: 20030311
  6. GABAPENTIN [Concomitant]
     Route: 048
     Dates: start: 20040520
  7. ETYNODIOL DIACETATE [Concomitant]
     Route: 048
     Dates: start: 20040604
  8. OMEPRAZOLE [Concomitant]
     Route: 048
     Dates: start: 20010828
  9. FUROSEMIDE INTENSOL [Concomitant]
     Route: 048
     Dates: start: 20040507
  10. FUROSEMIDE INTENSOL [Concomitant]
     Route: 048
  11. FUROSEMIDE INTENSOL [Concomitant]
     Route: 048

REACTIONS (2)
  - ARTHRALGIA [None]
  - JOINT SWELLING [None]
